FAERS Safety Report 21545064 (Version 1)
Quarter: 2022Q4

REPORT INFORMATION
  Report Type: Report from Study
  Country: US (occurrence: US)
  Receive Date: 20221103
  Receipt Date: 20221103
  Transmission Date: 20230112
  Serious: Yes (Other)
  Sender: FDA-Public Use
  Company Number: US-ABBVIE-4185497

PATIENT
  Age: 63 Year
  Sex: Male

DRUGS (1)
  1. IMBRUVICA [Suspect]
     Active Substance: IBRUTINIB
     Indication: Chronic lymphocytic leukaemia
     Route: 048
     Dates: start: 202206

REACTIONS (9)
  - Atrial fibrillation [Unknown]
  - Stomatitis [Unknown]
  - Nasal dryness [Unknown]
  - Epistaxis [Unknown]
  - Dysgeusia [Unknown]
  - Asthenia [Unknown]
  - Decreased appetite [Unknown]
  - Weight decreased [Unknown]
  - Nasal crusting [Unknown]

NARRATIVE: CASE EVENT DATE: 20220601
